FAERS Safety Report 6264123-7 (Version None)
Quarter: 2009Q3

REPORT INFORMATION
  Report Type: 
  Country: None (occurrence: None)
  Receive Date: 20090710
  Receipt Date: 20090629
  Transmission Date: 20100115
  Serious: Yes (Other)
  Sender: FDA-Public Use
  Company Number: US-PFIZER INC-2009236794

PATIENT
  Sex: Female
  Weight: 99.773 kg

DRUGS (1)
  1. GEODON [Suspect]
     Indication: SCHIZOPHRENIA

REACTIONS (5)
  - DYSPNOEA [None]
  - INTRACRANIAL PRESSURE INCREASED [None]
  - PRURITUS [None]
  - RASH [None]
  - SCHIZOPHRENIA [None]
